FAERS Safety Report 8955748 (Version 1)
Quarter: 2012Q4

REPORT INFORMATION
  Report Type: 
  Country: TR (occurrence: TR)
  Receive Date: 20121210
  Receipt Date: 20121210
  Transmission Date: 20130627
  Serious: Yes (Hospitalization, Other)
  Sender: FDA-Public Use
  Company Number: TR-BAYER-2012-128444

PATIENT
  Age: 60 Year
  Sex: Male

DRUGS (1)
  1. ULTRAVIST [Suspect]
     Indication: CORONARY ANGIOGRAPH

REACTIONS (4)
  - Coronary artery occlusion [None]
  - Angina pectoris [Recovered/Resolved]
  - Electrocardiogram ST segment elevation [Recovered/Resolved]
  - Blood pressure systolic decreased [Recovered/Resolved]
